FAERS Safety Report 7199314-4 (Version None)
Quarter: 2010Q4

REPORT INFORMATION
  Report Type: 
  Country: None (occurrence: None)
  Receive Date: 20101228
  Receipt Date: 20101220
  Transmission Date: 20110411
  Serious: Yes (Other)
  Sender: FDA-Public Use
  Company Number: US-PFIZER INC-2010176271

PATIENT
  Sex: Male

DRUGS (3)
  1. CELEBREX [Suspect]
     Indication: ARTHRITIS
     Dosage: 100 MG, 2X/DAY
     Route: 048
     Dates: start: 20101201
  2. CELEBREX [Suspect]
     Dosage: 200 MG, 2X/DAY
     Route: 048
     Dates: start: 20101201
  3. WARFARIN [Concomitant]
     Indication: CARDIAC DISORDER
     Dosage: UNK

REACTIONS (1)
  - HAEMATOCHEZIA [None]
